FAERS Safety Report 25227998 (Version 1)
Quarter: 2025Q2

REPORT INFORMATION
  Report Type: Spontaneous
  Country: CN (occurrence: CN)
  Receive Date: 20250423
  Receipt Date: 20250423
  Transmission Date: 20250717
  Serious: Yes (Hospitalization)
  Sender: JIANGSU HENGRUI
  Company Number: CN-JIANGSU HENGRUI PHARMACEUTICALS CO., LTD.-H2025211533

PATIENT
  Age: 53 Year
  Weight: 60 kg

DRUGS (2)
  1. GADOTERATE MEGLUMINE [Suspect]
     Active Substance: GADOTERATE MEGLUMINE
     Indication: Angiogram
  2. Kang Ai Injection [Concomitant]
     Indication: Lung neoplasm malignant

REACTIONS (1)
  - Generalised tonic-clonic seizure [Recovered/Resolved with Sequelae]
